FAERS Safety Report 7640821-5 (Version None)
Quarter: 2011Q3

REPORT INFORMATION
  Report Type: 
  Country: None (occurrence: None)
  Receive Date: 20110728
  Receipt Date: 20110606
  Transmission Date: 20111222
  Serious: No
  Sender: FDA-Public Use
  Company Number: US-MUTUAL PHARMACEUTICAL COMPANY, INC.-CLCY20110070

PATIENT
  Sex: Male
  Weight: 49.94 kg

DRUGS (3)
  1. COLCRYS [Suspect]
     Indication: FAMILIAL MEDITERRANEAN FEVER
     Route: 048
     Dates: start: 20101201, end: 20110604
  2. COLCRYS [Suspect]
     Route: 048
     Dates: start: 20110605
  3. NONE [Concomitant]

REACTIONS (3)
  - PYREXIA [None]
  - RASH [None]
  - BACK PAIN [None]
